FAERS Safety Report 8970062 (Version 1)
Quarter: 2012Q4

REPORT INFORMATION
  Report Type: 
  Country: CN (occurrence: CN)
  Receive Date: 20121217
  Receipt Date: 20121217
  Transmission Date: 20130627
  Serious: Yes (Other)
  Sender: FDA-Public Use
  Company Number: PHHY2012CN109845

PATIENT
  Age: 76 Year
  Sex: Female
  Weight: 60 kg

DRUGS (1)
  1. DIOVAN [Suspect]
     Indication: HYPERTENSIVE ENCEPHALOPATHY
     Dosage: 5 mg, QD
     Route: 048
     Dates: start: 20110706, end: 20110723

REACTIONS (1)
  - White blood cell count decreased [Recovered/Resolved]
